FAERS Safety Report 9248873 (Version 1)
Quarter: 2013Q1

REPORT INFORMATION
  Report Type: Spontaneous
  Country: US (occurrence: None)
  Receive Date: 20130305
  Receipt Date: 20130305
  Transmission Date: 20140127
  Serious: Yes (Other)
  Sender: FDA-Public Use
  Company Number: 163-21880-12091543 (0)

PATIENT
  Age: 67 Year
  Sex: Male
  Weight: 72.58 kg

DRUGS (16)
  1. REVLIMID [Suspect]
     Indication: PLASMA CELL MYELOMA
     Dosage: 21 IN 21 D
     Route: 048
     Dates: start: 20120718
  2. AREDIA [Concomitant]
  3. BABY ASPIRIN [Concomitant]
  4. BIOTIN [Concomitant]
  5. COENZYME Q10 (UBIDECARENONE) [Concomitant]
  6. DEXAMETHASONE (DEXAMETHASONE) [Concomitant]
  7. FINASTERIDE (FINASTERIDE) [Concomitant]
  8. LEXAPRO (ESCITALOPRAM OXALATE) [Concomitant]
  9. VITAMINS [Concomitant]
  10. OMEGA 3 (FISH OIL) [Concomitant]
  11. RESVERATROL (RESVERATROL) [Concomitant]
  12. SAW PALMETTO (SERENOA REPENS) [Concomitant]
  13. VALACICLOVIR (VALACICLOVIR) [Concomitant]
  14. VITAMIN B COMPLEX (B-KOMPLEX ^LECIVA^) [Concomitant]
  15. VITAMIN B12 (CYANOCOBALAMIN) [Concomitant]
  16. VITAMIN D3 (COLECALCIFEROL) [Concomitant]

REACTIONS (2)
  - Fatigue [None]
  - Rash [None]
